FAERS Safety Report 8200844-4 (Version None)
Quarter: 2012Q1

REPORT INFORMATION
  Report Type: 
  Country: None (occurrence: None)
  Receive Date: 20120308
  Receipt Date: 20120224
  Transmission Date: 20120608
  Serious: Yes (Disabling)
  Sender: FDA-Public Use
  Company Number: 216800

PATIENT
  Sex: Male
  Weight: 78 kg

DRUGS (5)
  1. METFORMIN HYDROCHLORIDE [Concomitant]
  2. ACETYLSALICYLIC ACID SRT [Concomitant]
  3. NOBITEN (NEBIVOLOL) [Concomitant]
  4. INNOHEP [Suspect]
     Indication: DEEP VEIN THROMBOSIS
     Dosage: SUBCUTANEOUS
     Route: 058
  5. IRBESARTAN AND HYDROCHLOROTHIAZIDE [Concomitant]

REACTIONS (2)
  - DRUG INEFFECTIVE [None]
  - DRUG LEVEL BELOW THERAPEUTIC [None]
